FAERS Safety Report 8240500-X (Version None)
Quarter: 2012Q1

REPORT INFORMATION
  Report Type: 
  Country: None (occurrence: None)
  Receive Date: 20120328
  Receipt Date: 20120323
  Transmission Date: 20120608
  Serious: Yes (Other)
  Sender: FDA-Public Use
  Company Number: US-ROCHE-1023563

PATIENT
  Sex: Female

DRUGS (1)
  1. ZELBORAF [Suspect]
     Indication: PRODUCT USED FOR UNKNOWN INDICATION
     Route: 065

REACTIONS (5)
  - VISUAL IMPAIRMENT [None]
  - DIARRHOEA [None]
  - OEDEMA PERIPHERAL [None]
  - NEOPLASM PROGRESSION [None]
  - HORDEOLUM [None]
